FAERS Safety Report 8373817-9 (Version None)
Quarter: 2012Q2

REPORT INFORMATION
  Report Type: 
  Country: None (occurrence: None)
  Receive Date: 20120521
  Receipt Date: 20120517
  Transmission Date: 20120825
  Serious: Yes (Hospitalization, Other)
  Sender: FDA-Public Use
  Company Number: CA-ROCHE-643638

PATIENT
  Age: 17 Year
  Sex: Male
  Weight: 179.33 kg

DRUGS (14)
  1. RITUXAN [Suspect]
     Dosage: BEGUN AT 50 MG/HR, INCREASED TO 100MG/HR AND TO 150 MG/HR THEN STOPPED
     Route: 065
  2. DIPHENHYDRAMINE HCL [Concomitant]
     Route: 042
  3. CALCIUM CARBONATE [Concomitant]
  4. COZAAR [Concomitant]
  5. DEXTROAMPHETAMINE [Concomitant]
  6. ACETAMINOPHEN [Concomitant]
     Dosage: PRETREATMENT
  7. RABEPRAZOLE SODIUM [Concomitant]
  8. CHOLECALCIFEROL [Concomitant]
  9. FLUOXETINE [Concomitant]
  10. SUCRALFATE [Concomitant]
  11. RITUXAN [Suspect]
     Indication: NEPHROTIC SYNDROME
     Dosage: RECEIVED 2 DOSES ONE WEEK APART
     Route: 042
  12. ONDANSETRON [Concomitant]
  13. ENALAPRIL MALEATE [Concomitant]
  14. VITAMIN D [Concomitant]

REACTIONS (6)
  - WHEEZING [None]
  - OEDEMA [None]
  - DYSPNOEA [None]
  - PARAESTHESIA ORAL [None]
  - PARAESTHESIA [None]
  - NEPHROTIC SYNDROME [None]
